FAERS Safety Report 19624648 (Version 1)
Quarter: 2021Q3

REPORT INFORMATION
  Report Type: Spontaneous
  Country: US (occurrence: US)
  Receive Date: 20210729
  Receipt Date: 20210729
  Transmission Date: 20211014
  Serious: Yes (Hospitalization, Other)
  Sender: FDA-Public Use
  Company Number: US-LUPIN PHARMACEUTICALS INC.-2021-12641

PATIENT
  Age: 16 Year
  Sex: Female
  Weight: 44.4 kg

DRUGS (2)
  1. AMLODIPINE [Suspect]
     Active Substance: AMLODIPINE BESYLATE
     Dosage: UNK (INGESTED A LARGE QUANTITY)
     Route: 048
  2. AMLODIPINE [Suspect]
     Active Substance: AMLODIPINE BESYLATE
     Indication: HYPERTENSION
     Dosage: UNK
     Route: 048

REACTIONS (6)
  - Cardiac arrest [Recovering/Resolving]
  - Suicide attempt [Unknown]
  - Anuria [Recovering/Resolving]
  - Overdose [Unknown]
  - Acute kidney injury [Recovering/Resolving]
  - Shock [Recovering/Resolving]
